FAERS Safety Report 11977076 (Version 1)
Quarter: 2016Q1

REPORT INFORMATION
  Report Type: Spontaneous
  Country: US (occurrence: US)
  Receive Date: 20160129
  Receipt Date: 20160129
  Transmission Date: 20160526
  Serious: No
  Sender: FDA-Public Use
  Company Number: US-PERRIGO-15US012008

PATIENT
  Sex: Male

DRUGS (2)
  1. IBUPROFEN AND DIPHENHYDRAMINE CITRATE [Suspect]
     Active Substance: DIPHENHYDRAMINE CITRATE\IBUPROFEN
     Indication: ACCIDENTAL EXPOSURE TO PRODUCT
     Dosage: THREE TABLETS, SINGLE
     Route: 048
     Dates: start: 20151112, end: 20151112
  2. IBUPROFEN AND DIPHENHYDRAMINE CITRATE [Suspect]
     Active Substance: DIPHENHYDRAMINE CITRATE\IBUPROFEN
     Indication: PRODUCT USED FOR UNKNOWN INDICATION
     Dosage: UNK, UNK
     Route: 048

REACTIONS (3)
  - Drug ineffective [Unknown]
  - Accidental overdose [Recovered/Resolved]
  - Wrong drug administered [Recovered/Resolved]

NARRATIVE: CASE EVENT DATE: 20151112
